FAERS Safety Report 9932923 (Version 1)
Quarter: 2014Q1

REPORT INFORMATION
  Report Type: Spontaneous
  Country: US (occurrence: US)
  Receive Date: 20140228
  Receipt Date: 20140228
  Transmission Date: 20141002
  Serious: No
  Sender: FDA-Public Use
  Company Number: US-GLAXOSMITHKLINE-A1039876A

PATIENT
  Age: 55 Year
  Sex: Female

DRUGS (15)
  1. LAMICTAL [Suspect]
     Indication: PRODUCT USED FOR UNKNOWN INDICATION
     Dosage: 200MG PER DAY
     Route: 048
     Dates: start: 2012
  2. GLIMEPIRIDE [Concomitant]
  3. LISINOPRIL [Concomitant]
  4. LIPITOR [Concomitant]
  5. ZETIA [Concomitant]
  6. TOPIRAMATE [Concomitant]
  7. LEVEMIR [Concomitant]
  8. VICTOZA [Concomitant]
  9. CYMBALTA [Concomitant]
  10. ZOLPIDEM [Concomitant]
  11. BUPROPION [Concomitant]
  12. LYRICA [Concomitant]
  13. HUMIRA [Concomitant]
  14. FLECTOR [Concomitant]
  15. FEXOFENADINE [Concomitant]

REACTIONS (1)
  - Vomiting [Not Recovered/Not Resolved]
